FAERS Safety Report 20903010 (Version 2)
Quarter: 2022Q2

REPORT INFORMATION
  Report Type: Report from Study
  Country: AU (occurrence: AU)
  Receive Date: 20220601
  Receipt Date: 20220622
  Transmission Date: 20220721
  Serious: Yes (Hospitalization)
  Sender: FDA-Public Use
  Company Number: AU-ABBVIE-22P-008-4408979-00

PATIENT
  Age: 71 Year
  Sex: Male
  Weight: 87.9 kg

DRUGS (13)
  1. VENETOCLAX [Suspect]
     Active Substance: VENETOCLAX
     Indication: Plasma cell myeloma
     Route: 048
     Dates: start: 20220519
  2. CARFILZOMIB [Suspect]
     Active Substance: CARFILZOMIB
     Indication: Plasma cell myeloma
     Dosage: 20 MG/M2 ON DAYS 1 AND 2; 27 MG/M2 ON DAYS 8, 9, 15, AND 16
     Route: 042
     Dates: start: 20220519
  3. DEXAMETHASONE [Suspect]
     Active Substance: DEXAMETHASONE
     Indication: Plasma cell myeloma
     Route: 048
     Dates: start: 20220519
  4. BETAVIT [Concomitant]
     Indication: Supplementation therapy
     Route: 048
     Dates: start: 2016
  5. CADIVAST [Concomitant]
     Indication: Blood cholesterol increased
     Route: 048
     Dates: start: 2019
  6. CAL 600 [Concomitant]
     Indication: Supplementation therapy
     Route: 048
     Dates: start: 202101
  7. DOSTINEX [Concomitant]
     Active Substance: CABERGOLINE
     Indication: Prolactin-producing pituitary tumour
     Route: 048
     Dates: start: 2016
  8. ESCITALOPRAM [Concomitant]
     Active Substance: ESCITALOPRAM OXALATE
     Indication: Anxiety
     Route: 048
     Dates: start: 20210628
  9. VITAMIN D [Concomitant]
     Active Substance: VITAMIN D NOS
     Indication: Supplementation therapy
     Route: 048
     Dates: start: 202101
  10. PANTOPRAZOLE [Concomitant]
     Active Substance: PANTOPRAZOLE
     Indication: Gastrooesophageal reflux disease
     Route: 048
     Dates: start: 2018
  11. SULFAMETHOXAZOLE\TRIMETHOPRIM [Concomitant]
     Active Substance: SULFAMETHOXAZOLE\TRIMETHOPRIM
     Indication: Antibiotic prophylaxis
     Route: 048
     Dates: start: 20190711
  12. ACETAMINOPHEN\CODEINE PHOSPHATE [Concomitant]
     Active Substance: ACETAMINOPHEN\CODEINE PHOSPHATE
     Indication: Arthralgia
     Dosage: TID/PRN
     Route: 048
     Dates: start: 202109
  13. SPREN [Concomitant]
     Indication: Cerebrovascular accident prophylaxis
     Route: 048
     Dates: start: 20210628

REACTIONS (1)
  - Nausea [Recovered/Resolved]

NARRATIVE: CASE EVENT DATE: 20220523
